FAERS Safety Report 15607738 (Version 1)
Quarter: 2018Q4

REPORT INFORMATION
  Report Type: Spontaneous
  Country: GB (occurrence: GB)
  Receive Date: 20181112
  Receipt Date: 20181112
  Transmission Date: 20190205
  Serious: Yes (Other)
  Sender: FDA-Public Use
  Company Number: GB-TEVA-2018-GB-974087

PATIENT
  Age: 36 Year
  Sex: Female
  Weight: 76.2 kg

DRUGS (1)
  1. TEVA UK MONTELUKAST [Suspect]
     Active Substance: MONTELUKAST SODIUM
     Indication: ASTHMA
     Route: 048
     Dates: start: 20180730, end: 20181004

REACTIONS (3)
  - Urticaria [Recovering/Resolving]
  - Alanine aminotransferase increased [Unknown]
  - Product substitution issue [Unknown]

NARRATIVE: CASE EVENT DATE: 20180807
